FAERS Safety Report 9771126 (Version 3)
Quarter: 2013Q4

REPORT INFORMATION
  Report Type: Report from Study
  Country: JP (occurrence: JP)
  Receive Date: 20131218
  Receipt Date: 20131220
  Transmission Date: 20140711
  Serious: Yes (Death, Hospitalization)
  Sender: FDA-Public Use
  Company Number: JP-PFIZER INC-2012158812

PATIENT
  Age: 61 Year
  Sex: Male
  Weight: 51 kg

DRUGS (14)
  1. TORISEL [Suspect]
     Indication: RENAL CELL CARCINOMA
     Dosage: 25 MG, WEEKLY
     Route: 041
     Dates: start: 20110317, end: 20110407
  2. TORISEL [Suspect]
     Dosage: 25 MG, UNK
     Route: 041
     Dates: start: 20110908, end: 20110908
  3. TORISEL [Suspect]
     Dosage: 25 MG, WEEKLY
     Route: 041
     Dates: start: 20111006, end: 20111027
  4. TORISEL [Suspect]
     Dosage: 25 MG, WEEKLY
     Route: 041
     Dates: start: 20111110, end: 20111215
  5. TORISEL [Suspect]
     Dosage: 25 MG, WEEKLY
     Route: 041
     Dates: start: 20120119, end: 20120202
  6. TORISEL [Suspect]
     Dosage: 25 MG, UNK
     Route: 041
     Dates: start: 20120216, end: 20120216
  7. POLARAMINE [Concomitant]
     Indication: PROPHYLAXIS
     Dosage: 5 MG, CYCLIC
     Route: 042
  8. ZOMETA [Concomitant]
     Indication: RENAL CELL CARCINOMA
     Dosage: 4 MG, 1X/DAY
     Route: 042
     Dates: start: 20091125
  9. ETODOLAC [Concomitant]
     Indication: RENAL CELL CARCINOMA
     Dosage: 200 MG, 2X/DAY
     Route: 048
     Dates: start: 20100401
  10. BLOSTAR M [Concomitant]
     Indication: PROPHYLAXIS
     Dosage: 20 MG, 1X/DAY
     Route: 048
     Dates: start: 20100909
  11. HUSTAZOL [Concomitant]
     Indication: RENAL CELL CARCINOMA
     Dosage: 10 MG, 3X/DAY
     Route: 048
  12. LOXOPROFEN [Concomitant]
     Indication: RENAL CELL CARCINOMA
     Dosage: 60 MG, 2X/DAY
     Route: 048
  13. OXYCONTIN [Concomitant]
     Indication: RENAL CELL CARCINOMA
     Dosage: 5 MG, 2X/DAY
     Route: 048
     Dates: start: 20120202, end: 20120210
  14. FENTOS TAPE [Concomitant]
     Indication: RENAL CELL CARCINOMA
     Dosage: 1 MG, 1X/DAY
     Route: 062
     Dates: start: 20120211

REACTIONS (3)
  - Pneumonia bacterial [Fatal]
  - Disease progression [Fatal]
  - Renal cell carcinoma [Fatal]
